FAERS Safety Report 7629552-5 (Version None)
Quarter: 2011Q3

REPORT INFORMATION
  Report Type: 
  Country: None (occurrence: None)
  Receive Date: 20110722
  Receipt Date: 20110711
  Transmission Date: 20111222
  Serious: Yes (Hospitalization, Other)
  Sender: FDA-Public Use
  Company Number: US-BAYER-2011-017785

PATIENT
  Age: 15 Year
  Sex: Female
  Weight: 73.469 kg

DRUGS (10)
  1. KLONOPIN [Concomitant]
     Indication: ANXIETY
     Dosage: UNK
     Dates: start: 20080101
  2. RITALIN [Concomitant]
     Indication: ATTENTION DEFICIT/HYPERACTIVITY DISORDER
     Dosage: 27 MG, UNK
     Dates: start: 20060101, end: 20080101
  3. ZOFRAN [Concomitant]
     Indication: NAUSEA
     Dosage: UNK
     Dates: start: 20080101, end: 20110101
  4. CEFUROXIME AXETIL [Concomitant]
     Dosage: 250 MG, UNK
  5. OXYCODONE HCL [Concomitant]
     Indication: PAIN
     Dosage: UNK
     Dates: start: 20080101, end: 20110101
  6. YAZ [Suspect]
     Indication: ACNE
     Dosage: UNK
     Dates: start: 20070625, end: 20080501
  7. YAZ [Suspect]
     Indication: CONTRACEPTION
  8. ZOFRAN [Concomitant]
     Indication: VOMITING
  9. NEXIUM [Concomitant]
     Indication: GASTROOESOPHAGEAL REFLUX DISEASE
     Dosage: UNK
     Dates: start: 20080101, end: 20090101
  10. VIAKASE [Concomitant]
     Indication: PANCREATITIS
     Dosage: UNK
     Dates: start: 20080101, end: 20090101

REACTIONS (6)
  - INJURY [None]
  - PANCREATITIS [None]
  - CHOLECYSTITIS CHRONIC [None]
  - ABDOMINAL PAIN UPPER [None]
  - PAIN [None]
  - CHOLELITHIASIS [None]
